FAERS Safety Report 8946307 (Version 1)
Quarter: 2012Q4

REPORT INFORMATION
  Report Type: 
  Country: US (occurrence: US)
  Receive Date: 20121204
  Receipt Date: 20121204
  Transmission Date: 20130627
  Serious: No
  Sender: FDA-Public Use
  Company Number: US-AMGEN-USASP2012074407

PATIENT
  Age: 45 Year
  Sex: Female
  Weight: 73.47 kg

DRUGS (6)
  1. ENBREL [Suspect]
     Indication: RHEUMATOID ARTHRITIS
     Dosage: 50 mg, qwk
     Route: 058
     Dates: start: 2010
  2. SAVELLA [Concomitant]
     Dosage: 50 mg, UNK
     Route: 048
  3. NEXIUM                             /01479302/ [Concomitant]
     Dosage: 20 mg, UNK
     Route: 048
  4. METHOTREXATE [Concomitant]
     Indication: RHEUMATOID ARTHRITIS
     Dosage: 2.5 mg, UNK
     Route: 048
  5. FOLIC ACID [Concomitant]
     Indication: RHEUMATOID ARTHRITIS
     Dosage: 1 mg, UNK
     Route: 048
  6. ELAN [Concomitant]
     Dosage: 10 mg, UNK
     Route: 048

REACTIONS (2)
  - Visual impairment [Not Recovered/Not Resolved]
  - Injection site pain [Not Recovered/Not Resolved]
